FAERS Safety Report 7005014-3 (Version None)
Quarter: 2010Q3

REPORT INFORMATION
  Report Type: 
  Country: None (occurrence: None)
  Receive Date: 20100921
  Receipt Date: 20100909
  Transmission Date: 20110219
  Serious: Yes (Hospitalization, Other)
  Sender: FDA-Public Use
  Company Number: US-AMGEN-QUU436475

PATIENT
  Sex: Female

DRUGS (11)
  1. NPLATE [Suspect]
     Indication: IDIOPATHIC THROMBOCYTOPENIC PURPURA
     Dates: start: 20090924, end: 20100216
  2. IMMU-G [Concomitant]
     Route: 042
     Dates: start: 20050501
  3. DURAGESIC-100 [Concomitant]
     Route: 062
  4. DILAUDID [Concomitant]
     Route: 048
  5. NOVOLIN 70/30 [Concomitant]
  6. VALTREX [Concomitant]
  7. LISINOPRIL AND HYDROCHLOROTHIAZIDE [Concomitant]
  8. SENOKOT [Concomitant]
  9. AMBIEN [Concomitant]
  10. MICRO-K [Concomitant]
     Route: 048
  11. METFORMIN [Concomitant]

REACTIONS (13)
  - ACCESSORY SPLEEN [None]
  - ANGIOPATHY [None]
  - ASTHENIA [None]
  - COUGH [None]
  - DEEP VEIN THROMBOSIS [None]
  - DIZZINESS [None]
  - DYSPNOEA [None]
  - HEADACHE [None]
  - HOT FLUSH [None]
  - HYPOTENSION [None]
  - MALAISE [None]
  - RENAL FAILURE ACUTE [None]
  - THROMBOCYTOPENIA [None]
